FAERS Safety Report 6682551-2 (Version None)
Quarter: 2010Q2

REPORT INFORMATION
  Report Type: 
  Country: None (occurrence: None)
  Receive Date: 20100415
  Receipt Date: 20100315
  Transmission Date: 20101027
  Serious: No
  Sender: FDA-Public Use
  Company Number: US-BAYER-201013331BCC

PATIENT
  Age: 46 Year
  Sex: Female

DRUGS (1)
  1. FINACEA [Suspect]
     Indication: ROSACEA
     Route: 061
     Dates: start: 20090101, end: 20100101

REACTIONS (3)
  - RASH [None]
  - ROSACEA [None]
  - SKIN IRRITATION [None]
